FAERS Safety Report 15371917 (Version 1)
Quarter: 2018Q3

REPORT INFORMATION
  Report Type: Spontaneous
  Country: US (occurrence: US)
  Receive Date: 20180911
  Receipt Date: 20180911
  Transmission Date: 20181010
  Serious: No
  Sender: FDA-Public Use
  Company Number: US-SA-2018SA249855

PATIENT

DRUGS (6)
  1. ARAVA [Suspect]
     Active Substance: LEFLUNOMIDE
     Dosage: UNK
     Dates: start: 201408, end: 201412
  2. ENBREL [Concomitant]
     Active Substance: ETANERCEPT
     Dosage: UNK UNK, UNK
     Dates: start: 200410, end: 201211
  3. ARAVA [Suspect]
     Active Substance: LEFLUNOMIDE
     Dosage: UNK UNK, UNK
     Dates: start: 201408, end: 201412
  4. HUMIRA [Concomitant]
     Active Substance: ADALIMUMAB
     Dosage: UNK, UNK
     Dates: start: 201505, end: 201804
  5. METHOTREXATE. [Concomitant]
     Active Substance: METHOTREXATE
     Dosage: UNK, UNK
     Dates: start: 1999
  6. SULFASALAZINE. [Concomitant]
     Active Substance: SULFASALAZINE
     Dosage: UNK UNK, UNK
     Dates: start: 200405, end: 200409

REACTIONS (2)
  - Hepatic enzyme increased [Unknown]
  - Drug ineffective [Unknown]
